FAERS Safety Report 17983209 (Version 25)
Quarter: 2023Q2

REPORT INFORMATION
  Report Type: Spontaneous
  Country: IL (occurrence: IL)
  Receive Date: 20200706
  Receipt Date: 20230526
  Transmission Date: 20230722
  Serious: Yes (Other)
  Sender: FDA-Public Use
  Company Number: IL-PFIZER INC-2017029199

PATIENT
  Age: 71 Year
  Sex: Male

DRUGS (9)
  1. ELELYSO [Suspect]
     Active Substance: TALIGLUCERASE ALFA
     Indication: Gaucher^s disease
     Dosage: UNK
     Dates: start: 20160301
  2. ELELYSO [Suspect]
     Active Substance: TALIGLUCERASE ALFA
     Dosage: TWICE A MONTH
     Route: 042
  3. ELELYSO [Suspect]
     Active Substance: TALIGLUCERASE ALFA
     Dosage: TWICE A MONTH
     Route: 042
     Dates: start: 20210308
  4. ELELYSO [Suspect]
     Active Substance: TALIGLUCERASE ALFA
     Dosage: 3200IU/ 16 VIALS E.O.W/2M
     Route: 042
     Dates: start: 20221117
  5. ELELYSO [Suspect]
     Active Substance: TALIGLUCERASE ALFA
     Dosage: 3200 IU TWICE A MONTH
     Route: 042
  6. ELELYSO [Suspect]
     Active Substance: TALIGLUCERASE ALFA
     Dosage: 3200IU/ 16 VIALS E.O.W/2M
     Route: 042
     Dates: start: 20230302, end: 20230302
  7. ELELYSO [Suspect]
     Active Substance: TALIGLUCERASE ALFA
     Dosage: 3200 IU TWICE A MONTH (16 VIALS E.O.W/2 M)
     Route: 042
     Dates: start: 20230322, end: 20230322
  8. ELELYSO [Suspect]
     Active Substance: TALIGLUCERASE ALFA
     Dosage: 3200IU/ 16 VIALS E.O.W/2M
     Route: 042
     Dates: start: 20230502, end: 20230502
  9. ELELYSO [Suspect]
     Active Substance: TALIGLUCERASE ALFA
     Dosage: 3200IU/ 16 VIALS E.O.W/2M
     Route: 042
     Dates: start: 20230523, end: 20230523

REACTIONS (9)
  - Cataract [Unknown]
  - Pyrexia [Unknown]
  - Lymphoma [Unknown]
  - Asthenia [Unknown]
  - Full blood count decreased [Unknown]
  - Off label use [Unknown]
  - Product storage error [Unknown]
  - Incorrect dose administered [Unknown]
  - Product dose omission issue [Recovered/Resolved]
